FAERS Safety Report 24206407 (Version 1)
Quarter: 2024Q3

REPORT INFORMATION
  Report Type: Report from Study
  Country: CR (occurrence: CR)
  Receive Date: 20240813
  Receipt Date: 20240813
  Transmission Date: 20241016
  Serious: Yes (Other)
  Sender: MYLAN
  Company Number: CR-MYLANLABS-2024M1074157

PATIENT
  Age: 88 Year
  Sex: Female
  Weight: 59.86 kg

DRUGS (1)
  1. NORVASC [Suspect]
     Active Substance: AMLODIPINE BESYLATE
     Indication: Blood pressure abnormal
     Dosage: 5 MILLIGRAM, QD (DAILY)
     Route: 048

REACTIONS (2)
  - Shoulder fracture [Not Recovered/Not Resolved]
  - Gait disturbance [Unknown]

NARRATIVE: CASE EVENT DATE: 20240515
